FAERS Safety Report 5360010-7 (Version None)
Quarter: 2007Q2

REPORT INFORMATION
  Report Type: 
  Country: None (occurrence: None)
  Receive Date: 20070618
  Receipt Date: 20070606
  Transmission Date: 20071010
  Serious: Yes (Other)
  Sender: FDA-Public Use
  Company Number: US-JNJFOC-20070405603

PATIENT
  Sex: Male
  Weight: 85.28 kg

DRUGS (12)
  1. REMICADE [Suspect]
  2. REMICADE [Suspect]
     Indication: CROHN'S DISEASE
  3. AZULFIDINE [Concomitant]
  4. COUMADIN [Concomitant]
  5. COUMADIN [Concomitant]
  6. PROSCAR [Concomitant]
     Route: 048
  7. DIOVAN [Concomitant]
  8. LIPITOR [Concomitant]
  9. TRICOR [Concomitant]
  10. AVANDIA [Concomitant]
  11. URICET [Concomitant]
  12. TOPROL-XL [Concomitant]

REACTIONS (4)
  - BLOOD GLUCOSE INCREASED [None]
  - INFUSION RELATED REACTION [None]
  - TRISMUS [None]
  - VERTIGO [None]
